FAERS Safety Report 12707165 (Version 1)
Quarter: 2016Q3

REPORT INFORMATION
  Report Type: Spontaneous
  Country: MX (occurrence: MX)
  Receive Date: 20160901
  Receipt Date: 20160901
  Transmission Date: 20161109
  Serious: Yes (Disabling)
  Sender: FDA-Public Use
  Company Number: MX-PFIZER INC-2016408983

PATIENT

DRUGS (2)
  1. ITRACONAZOL [Interacting]
     Active Substance: ITRACONAZOLE
  2. DALACIN C [Suspect]
     Active Substance: CLINDAMYCIN PHOSPHATE
     Indication: ABSCESS LIMB
     Dosage: UNK
     Dates: start: 20160819

REACTIONS (2)
  - Drug interaction [Unknown]
  - Neuropathy peripheral [Unknown]
